FAERS Safety Report 6473277-9 (Version None)
Quarter: 2009Q4

REPORT INFORMATION
  Report Type: 
  Country: None (occurrence: None)
  Receive Date: 20091204
  Receipt Date: 20080828
  Transmission Date: 20100525
  Serious: Yes (Hospitalization, Other)
  Sender: FDA-Public Use
  Company Number: US-ELI_LILLY_AND_COMPANY-US200806004387

PATIENT
  Age: 83 Year
  Sex: Female

DRUGS (18)
  1. CYMBALTA [Suspect]
     Indication: BACK PAIN
     Dosage: 30 MG, UNK
     Route: 048
     Dates: start: 20071123, end: 20080701
  2. EFFEXOR [Concomitant]
  3. METHADONE [Concomitant]
     Indication: BACK PAIN
     Dosage: 10 MG, DAILY (1/D)
     Route: 048
  4. LEVOTHYROXINE SODIUM [Concomitant]
     Indication: HYPOTHYROIDISM
     Dosage: 0.112 MG, DAILY (1/D)
     Route: 048
  5. DETROL /USA/ [Concomitant]
     Dosage: 4 MG, DAILY (1/D)
     Dates: end: 20080601
  6. PREDNISONE [Concomitant]
     Indication: POLYMYALGIA RHEUMATICA
     Dosage: 2 MG, DAILY (1/D)
     Dates: start: 20070101
  7. PREDNISONE [Concomitant]
     Dosage: 4 MG, DAILY (1/D)
     Route: 048
  8. TRIMETHOPRIM [Concomitant]
     Indication: URINARY TRACT INFECTION
     Dosage: 100 MG, DAILY (1/D)
     Route: 048
  9. COUMADIN [Concomitant]
     Indication: DEEP VEIN THROMBOSIS
  10. FOLIC ACID [Concomitant]
     Dosage: 1 MG, DAILY (1/D)
     Route: 048
  11. VITAMIN B12 + FOLIC ACID [Concomitant]
     Dosage: 1000 UG, MONTHLY (1/M)
     Route: 030
  12. LIDODERM [Concomitant]
     Indication: PAIN
  13. TIZANIDINE HCL [Concomitant]
     Indication: MUSCLE RELAXANT THERAPY
  14. MIACALCIN [Concomitant]
     Indication: OSTEOPOROSIS
     Dosage: UNK, DAILY (1/D)
     Route: 045
  15. OXYCODONE HCL [Concomitant]
     Indication: SPINAL COMPRESSION FRACTURE
     Dosage: UNK, AS NEEDED
  16. ATARAX [Concomitant]
     Dosage: 50 MG, AS NEEDED
  17. FLONASE [Concomitant]
     Dosage: UNK, EVERY 6 HRS
     Route: 045
  18. SENOKOT [Concomitant]
     Dosage: UNK, AS NEEDED
     Route: 048

REACTIONS (10)
  - CAROTID ARTERY OCCLUSION [None]
  - DRUG TOXICITY [None]
  - FATIGUE [None]
  - HYPERHIDROSIS [None]
  - HYPERTENSIVE CRISIS [None]
  - HYPOTENSION [None]
  - ORTHOSTATIC HYPOTENSION [None]
  - POLLAKIURIA [None]
  - SEROTONIN SYNDROME [None]
  - TREMOR [None]
